FAERS Safety Report 4566877-4 (Version None)
Quarter: 2005Q1

REPORT INFORMATION
  Report Type: 
  Country: None (occurrence: None)
  Receive Date: 20050201
  Receipt Date: 20020520
  Transmission Date: 20050727
  Serious: Yes (Other)
  Sender: FDA-Public Use
  Company Number: US-BRISTOL-MYERS SQUIBB COMPANY-11872181

PATIENT
  Age: 23 Year
  Sex: Female

DRUGS (2)
  1. STADOL [Suspect]
     Indication: MIGRAINE
     Dosage: SEPTEMBER 1995 TO APPROX. JUNE 1996 AND SEPTEMBER 2001;3 RX 10MG/ML X 3 AND 1 RX 10MG/ML X 2.5
     Route: 045
     Dates: start: 19950101
  2. STADOL [Suspect]
     Indication: HYDRONEPHROSIS
     Dosage: SEPTEMBER 1995 TO APPROX. JUNE 1996 AND SEPTEMBER 2001;3 RX 10MG/ML X 3 AND 1 RX 10MG/ML X 2.5
     Route: 045
     Dates: start: 19950101

REACTIONS (3)
  - DEPENDENCE [None]
  - DEPRESSION [None]
  - SUICIDAL IDEATION [None]
